FAERS Safety Report 15543283 (Version 3)
Quarter: 2019Q1

REPORT INFORMATION
  Report Type: Report from Study
  Country: ZA (occurrence: ZA)
  Receive Date: 20181023
  Receipt Date: 20190301
  Transmission Date: 20190417
  Serious: Yes (Life-Threatening, Hospitalization)
  Sender: FDA-Public Use
  Company Number: ZA-SA-2018SA288365

PATIENT
  Age: 60 Year
  Sex: Male

DRUGS (7)
  1. TOUJEO [Suspect]
     Active Substance: INSULIN GLARGINE
     Indication: TYPE 2 DIABETES MELLITUS
     Dosage: 10 U, QD (AT SUPPER)
     Dates: start: 20180910
  2. DIAMICRON [Concomitant]
     Active Substance: GLICLAZIDE
     Dosage: 60 MG, BID, AS, AB (AFTER SUPPER AND AFTER BREAKFAST)
     Dates: start: 20180925
  3. NO STUDY DRUG GIVEN [Suspect]
     Active Substance: UNSPECIFIED INGREDIENT
  4. TOUJEO [Suspect]
     Active Substance: INSULIN GLARGINE
     Dosage: 10 U, QD AFTER SUPPER
     Dates: start: 20181009
  5. GLUCOPHAGE [Concomitant]
     Active Substance: METFORMIN HYDROCHLORIDE
     Dosage: 1 G, BID (AFTER SUPPER AND AFTER BREAKFAST)
     Dates: start: 20180925
  6. NOVORAPID [Concomitant]
     Active Substance: INSULIN ASPART
     Dosage: 7 U, TID (BEFORE SUPPER, BEFORE LUNCH AND BEFORE BREAKFAST)
     Dates: start: 20181211
  7. NOVORAPID [Concomitant]
     Active Substance: INSULIN ASPART
     Dosage: 7 U, TID (BEFORE SUPPER, BEFORE LUNCH AND BEFORE BREAKFAST)
     Dates: start: 20181204

REACTIONS (5)
  - Pain in extremity [Not Recovered/Not Resolved]
  - Injection site pain [Not Recovered/Not Resolved]
  - Malaise [Not Recovered/Not Resolved]
  - Peripheral vascular disorder [Unknown]
  - Skin discolouration [Not Recovered/Not Resolved]

NARRATIVE: CASE EVENT DATE: 20181012
